FAERS Safety Report 16184553 (Version 1)
Quarter: 2019Q2

REPORT INFORMATION
  Report Type: Spontaneous
  Country: US (occurrence: US)
  Receive Date: 20190410
  Receipt Date: 20190410
  Transmission Date: 20190711
  Serious: Yes (Hospitalization)
  Sender: FDA-Public Use
  Company Number: None

PATIENT
  Age: 95 Year
  Sex: Female
  Weight: 67.5 kg

DRUGS (2)
  1. ERTAPENEM. [Suspect]
     Active Substance: ERTAPENEM SODIUM
     Indication: APPENDICITIS
     Route: 042
     Dates: start: 20190327, end: 20190408
  2. ERTAPENEM. [Suspect]
     Active Substance: ERTAPENEM SODIUM
     Indication: ABSCESS
     Route: 042
     Dates: start: 20190327, end: 20190408

REACTIONS (6)
  - Dysphagia [None]
  - Seizure [None]
  - Tremor [None]
  - Language disorder [None]
  - Dysstasia [None]
  - Hallucination [None]

NARRATIVE: CASE EVENT DATE: 20190408
